FAERS Safety Report 9038461 (Version 1)
Quarter: 2013Q1

REPORT INFORMATION
  Report Type: Report from Study
  Country: US (occurrence: US)
  Receive Date: 20130129
  Receipt Date: 20130129
  Transmission Date: 20140127
  Serious: Yes (Other)
  Sender: FDA-Public Use
  Company Number: US-BAXTER-2013BAX003310

PATIENT
  Sex: 0

DRUGS (4)
  1. CYTOXAN [Suspect]
     Indication: PLASMA CELL MYELOMA
     Route: 042
  2. BORTEZOMIB [Suspect]
     Indication: PLASMA CELL MYELOMA
     Route: 042
  3. DOXORUBICIN [Suspect]
     Indication: PLASMA CELL MYELOMA
     Dosage: ON DAY 8 PER 28 DAY CYCLE
  4. DEXAMETHASONE [Suspect]
     Indication: PLASMA CELL MYELOMA
     Dosage: ON DAYS 1, 8 AND 15
     Route: 048

REACTIONS (1)
  - Infection [Unknown]
